FAERS Safety Report 5472824-3 (Version None)
Quarter: 2007Q4

REPORT INFORMATION
  Report Type: 
  Country: None (occurrence: None)
  Receive Date: 20071001
  Receipt Date: 20061229
  Transmission Date: 20080405
  Serious: No
  Sender: FDA-Public Use
  Company Number: US-ASTRAZENECA-2006UW28676

PATIENT
  Age: 83 Year
  Sex: Female

DRUGS (7)
  1. ARIMIDEX [Suspect]
     Route: 048
     Dates: start: 20060701
  2. ZETIA [Concomitant]
  3. ISOSORBIDE MONONITRATE [Concomitant]
  4. PLAVIX [Concomitant]
  5. HYZAAR [Concomitant]
     Dosage: 50/12.5 MG
  6. METOPROLOL [Concomitant]
  7. DYRENIUM [Concomitant]

REACTIONS (1)
  - HYPOTHYROIDISM [None]
